FAERS Safety Report 18666291 (Version 1)
Quarter: 2020Q4

REPORT INFORMATION
  Report Type: Spontaneous
  Country: US (occurrence: US)
  Receive Date: 20201226
  Receipt Date: 20201226
  Transmission Date: 20210114
  Serious: Yes (Other)
  Sender: FDA-Public Use
  Company Number: US-TEVA-2020-US-1861032

PATIENT
  Sex: Female

DRUGS (1)
  1. EPINEPHRINE TEVA [Suspect]
     Active Substance: EPINEPHRINE
     Indication: HYPERSENSITIVITY
     Dosage: 0.3 MG / 0.3 ML
     Route: 065

REACTIONS (3)
  - Scar [Unknown]
  - Device malfunction [Unknown]
  - Needle issue [Unknown]
